FAERS Safety Report 4359504-2 (Version None)
Quarter: 2004Q2

REPORT INFORMATION
  Report Type: 
  Country: None (occurrence: None)
  Receive Date: 20040512
  Receipt Date: 20040430
  Transmission Date: 20050107
  Serious: Yes (Hospitalization, Other)
  Sender: FDA-Public Use
  Company Number: 163-20785-04030653

PATIENT
  Age: 50 Year
  Sex: Male

DRUGS (8)
  1. THALOMID (THALIDOMIDE) (100 MILLIGRAM, CAPSULES) [Suspect]
     Indication: MULTIPLE MYELOMA
     Dosage: 200 MG, DAILY, ORAL
     Route: 048
     Dates: start: 20031017
  2. FLURAZEPAM [Concomitant]
  3. LORAZEPAM [Concomitant]
  4. HYDROMORPHONE HCL [Concomitant]
  5. PROCHLORPERAZINE [Concomitant]
  6. DEXAMETHASONE [Concomitant]
  7. PROTONIX [Concomitant]
  8. WARFARIN SODIUM [Concomitant]

REACTIONS (7)
  - DIABETES MELLITUS [None]
  - FAECAL INCONTINENCE [None]
  - FALL [None]
  - MALIGNANT NEOPLASM PROGRESSION [None]
  - METASTASES TO SPINE [None]
  - PARAPLEGIA [None]
  - URINARY INCONTINENCE [None]
